FAERS Safety Report 6457704-9 (Version None)
Quarter: 2009Q4

REPORT INFORMATION
  Report Type: 
  Country: None (occurrence: None)
  Receive Date: 20091120
  Receipt Date: 20091112
  Transmission Date: 20100525
  Serious: Yes (Death, Hospitalization)
  Sender: FDA-Public Use
  Company Number: 2009PL000305

PATIENT
  Age: 28 Year
  Sex: Male

DRUGS (2)
  1. AZATHIOPRINE [Suspect]
     Indication: COLITIS ULCERATIVE
  2. MESALAZINE [Concomitant]

REACTIONS (16)
  - B-CELL LYMPHOMA [None]
  - COLITIS [None]
  - EPSTEIN-BARR VIRUS INFECTION [None]
  - FLATULENCE [None]
  - HAEMATOCHEZIA [None]
  - HEPATOSPLENOMEGALY [None]
  - METASTASES TO CENTRAL NERVOUS SYSTEM [None]
  - METASTASES TO GALLBLADDER [None]
  - METASTASES TO HEART [None]
  - METASTASES TO LIVER [None]
  - MULTI-ORGAN FAILURE [None]
  - NERVOUS SYSTEM DISORDER [None]
  - PANCYTOPENIA [None]
  - RASH [None]
  - RESPIRATORY FAILURE [None]
  - TACHYCARDIA [None]
